FAERS Safety Report 8351682-3 (Version None)
Quarter: 2012Q2

REPORT INFORMATION
  Report Type: 
  Country: None (occurrence: None)
  Receive Date: 20120511
  Receipt Date: 20120502
  Transmission Date: 20120825
  Serious: No
  Sender: FDA-Public Use
  Company Number: US-BIOGENIDEC-2012BI015579

PATIENT
  Age: 48 Year
  Sex: Female

DRUGS (3)
  1. TYSABRI [Suspect]
     Indication: MULTIPLE SCLEROSIS
     Route: 042
     Dates: start: 20111208
  2. ZYRTEC [Concomitant]
  3. BENADRYL [Concomitant]
     Indication: PREMEDICATION
     Route: 048

REACTIONS (3)
  - RASH [None]
  - EXFOLIATIVE RASH [None]
  - RASH PAPULAR [None]
